FAERS Safety Report 9285373 (Version 1)
Quarter: 2013Q2

REPORT INFORMATION
  Report Type: Spontaneous
  Country: US (occurrence: US)
  Receive Date: 20130513
  Receipt Date: 20130513
  Transmission Date: 20140414
  Serious: Yes (Other)
  Sender: FDA-Public Use
  Company Number: US-JNJFOC-20130502652

PATIENT
  Sex: Female
  Weight: 61.69 kg

DRUGS (3)
  1. BENADRYL [Suspect]
     Indication: HYPERSENSITIVITY
     Dosage: 1/2 TABLET, 10 MINUTES APART 1/2 TABLET AGAIN
     Route: 048
  2. PHENOBARBITAL [Concomitant]
     Indication: EPILEPSY
     Route: 065
  3. LIPITOR [Concomitant]
     Indication: HYPERTENSION
     Route: 065

REACTIONS (3)
  - Anaphylactic shock [Recovered/Resolved]
  - Wrong technique in drug usage process [Unknown]
  - Off label use [Unknown]
